FAERS Safety Report 23128278 (Version 2)
Quarter: 2023Q4

REPORT INFORMATION
  Report Type: Spontaneous
  Country: DE (occurrence: DE)
  Receive Date: 20231031
  Receipt Date: 20231225
  Transmission Date: 20240110
  Serious: Yes (Other)
  Sender: FDA-Public Use
  Company Number: None

PATIENT
  Age: 53 Year
  Sex: Male
  Weight: 75 kg

DRUGS (2)
  1. RABEPRAZOLE [Interacting]
     Active Substance: RABEPRAZOLE
     Indication: Gastrooesophageal reflux disease
     Dosage: 10MG OR 20MG BETWEEN 01.03.2022 AND 06.09.2023
     Route: 048
  2. PANTOPRAZOLE SODIUM [Interacting]
     Active Substance: PANTOPRAZOLE SODIUM
     Indication: Gastrooesophageal reflux disease
     Dosage: 10MG OR 20MG BETWEEN 01.03.2022 AND 06.09.2023
     Route: 048

REACTIONS (8)
  - Blood pressure increased [Recovering/Resolving]
  - Presyncope [Recovered/Resolved]
  - Amnesia [Recovered/Resolved]
  - Nausea [Recovered/Resolved]
  - Asthenia [Recovered/Resolved]
  - Dizziness [Recovered/Resolved]
  - Circulatory collapse [Recovering/Resolving]
  - Drug interaction [Recovered/Resolved]

NARRATIVE: CASE EVENT DATE: 20230209
